FAERS Safety Report 15010154 (Version 1)
Quarter: 2018Q2

REPORT INFORMATION
  Report Type: Spontaneous
  Country: US (occurrence: US)
  Receive Date: 20180614
  Receipt Date: 20180614
  Transmission Date: 20180711
  Serious: No
  Sender: FDA-Public Use
  Company Number: PHEH2018US023406

PATIENT

DRUGS (2)
  1. AFINITOR [Suspect]
     Active Substance: EVEROLIMUS
     Indication: RENAL CANCER
     Dosage: 5 MG, QD
     Route: 048
  2. LENVATINIB [Concomitant]
     Active Substance: LENVATINIB
     Indication: PRODUCT USED FOR UNKNOWN INDICATION
     Dosage: 18 MG, QD
     Route: 065

REACTIONS (6)
  - Limb discomfort [Not Recovered/Not Resolved]
  - Dizziness [Not Recovered/Not Resolved]
  - Hypoaesthesia [Recovered/Resolved]
  - Fall [Not Recovered/Not Resolved]
  - Pain in extremity [Not Recovered/Not Resolved]
  - Skin ulcer [Not Recovered/Not Resolved]
